FAERS Safety Report 24603889 (Version 1)
Quarter: 2024Q4

REPORT INFORMATION
  Report Type: Spontaneous
  Country: US (occurrence: US)
  Receive Date: 20241111
  Receipt Date: 20241111
  Transmission Date: 20250114
  Serious: Yes (Hospitalization)
  Sender: PFIZER
  Company Number: US-PFIZER INC-202400296022

PATIENT
  Age: 21 Year
  Sex: Female
  Weight: 73.48 kg

DRUGS (1)
  1. DEPO-PROVERA [Suspect]
     Active Substance: MEDROXYPROGESTERONE ACETATE
     Dosage: DOSE: UNKNOWN; SHOT EVERY 3 MONTHS
     Dates: start: 20191215, end: 20240815

REACTIONS (19)
  - Fungal infection [Unknown]
  - Urinary tract infection [Unknown]
  - Blood urine present [Unknown]
  - Mood swings [Not Recovered/Not Resolved]
  - Weight increased [Not Recovered/Not Resolved]
  - Abdominal pain upper [Not Recovered/Not Resolved]
  - Abdominal pain [Not Recovered/Not Resolved]
  - Abdominal pain [Unknown]
  - Nausea [Unknown]
  - Screaming [Unknown]
  - Hypertension [Unknown]
  - Headache [Unknown]
  - Back pain [Unknown]
  - Breast tenderness [Unknown]
  - Breast swelling [Unknown]
  - Uterine pain [Unknown]
  - Anxiety [Unknown]
  - Blood test abnormal [Unknown]
  - Blood cholesterol increased [Unknown]

NARRATIVE: CASE EVENT DATE: 20191201
